FAERS Safety Report 8478020-X (Version None)
Quarter: 2012Q2

REPORT INFORMATION
  Report Type: 
  Country: None (occurrence: None)
  Receive Date: 20120629
  Receipt Date: 20120601
  Transmission Date: 20120825
  Serious: Yes (Hospitalization)
  Sender: FDA-Public Use
  Company Number: US-JNJFOC-20120602235

PATIENT
  Sex: Male
  Weight: 79.83 kg

DRUGS (5)
  1. ELIGARD [Concomitant]
     Indication: BONE DISORDER
     Route: 065
     Dates: start: 20100101
  2. LEUPROLIDE ACETATE [Concomitant]
     Indication: PROSTATE CANCER
     Route: 065
     Dates: start: 20120301
  3. ESTROGEN [Concomitant]
     Indication: PROSTATE CANCER
     Route: 062
     Dates: start: 20120501
  4. ZYTIGA [Suspect]
     Indication: PROSTATE CANCER
     Route: 048
     Dates: start: 20120522
  5. DEXAMETHASONE [Suspect]
     Indication: PROSTATE CANCER
     Route: 048
     Dates: start: 20120527

REACTIONS (2)
  - PAIN [None]
  - GASTRIC DISORDER [None]
